FAERS Safety Report 8457716-X (Version None)
Quarter: 2012Q2

REPORT INFORMATION
  Report Type: 
  Country: None (occurrence: None)
  Receive Date: 20120618
  Receipt Date: 20120618
  Transmission Date: 20120825
  Serious: Yes (Life-Threatening, Hospitalization, Disabling)
  Sender: FDA-Public Use
  Company Number: None

PATIENT
  Age: 54 Year
  Sex: Female
  Weight: 50.8029 kg

DRUGS (1)
  1. ZOLPIDEM [Suspect]
     Indication: INITIAL INSOMNIA
     Dosage: 10MG NIGHTLY PO
     Route: 048
     Dates: start: 20120609, end: 20120610

REACTIONS (5)
  - PRODUCT QUALITY ISSUE [None]
  - PRODUCT CONTAMINATION [None]
  - HALLUCINATION [None]
  - REFUSAL OF TREATMENT BY PATIENT [None]
  - NIGHTMARE [None]
